FAERS Safety Report 4957438-3 (Version None)
Quarter: 2006Q1

REPORT INFORMATION
  Report Type: 
  Country: None (occurrence: None)
  Receive Date: 20060327
  Receipt Date: 20060317
  Transmission Date: 20060701
  Serious: Yes (Hospitalization)
  Sender: FDA-Public Use
  Company Number: 2004-05-1094

PATIENT
  Age: 66 Year
  Sex: Male

DRUGS (9)
  1. REBETOL [Suspect]
     Indication: HEPATITIS C
     Dosage: 600-400*MG ORAL
     Route: 048
     Dates: start: 20020826, end: 20030115
  2. INTRON A [Suspect]
     Indication: HEPATITIS C
     Dosage: 6 MIU*6-3X/WK INTRAMUSC
     Route: 030
     Dates: start: 20020826, end: 20030227
  3. TEGRETOL-XR [Concomitant]
  4. SELBEX [Concomitant]
  5. VALERIN TABLETS [Concomitant]
  6. FELODIPINE TABLETS [Concomitant]
  7. MAGNESIUM HYDROXIDE TABLETS [Concomitant]
  8. DIOVAN TABLETS [Concomitant]
  9. ZONISAMIDE TABLETS [Concomitant]

REACTIONS (4)
  - ANAEMIA [None]
  - MONOCYTE COUNT INCREASED [None]
  - NASOPHARYNGITIS [None]
  - WHITE BLOOD CELL COUNT DECREASED [None]
